FAERS Safety Report 9973161 (Version 1)
Quarter: 2014Q1

REPORT INFORMATION
  Report Type: Report from Study
  Country: PR (occurrence: PR)
  Receive Date: 20140306
  Receipt Date: 20140306
  Transmission Date: 20141002
  Serious: No
  Sender: FDA-Public Use
  Company Number: PR-ABBVIE-13P-131-1157697-00

PATIENT
  Sex: Male
  Weight: 73.09 kg

DRUGS (8)
  1. HUMIRA [Suspect]
     Indication: RHEUMATOID ARTHRITIS
     Route: 058
  2. CLONOPIN [Suspect]
     Indication: INSOMNIA
     Route: 048
  3. PREDNISONE [Concomitant]
     Indication: RHEUMATOID ARTHRITIS
     Route: 048
  4. FOLIC ACID [Concomitant]
     Indication: RHEUMATOID ARTHRITIS
     Route: 048
  5. METHOTREXATE [Concomitant]
     Indication: RHEUMATOID ARTHRITIS
     Route: 048
  6. SULINDAC [Concomitant]
     Indication: RHEUMATOID ARTHRITIS
     Route: 048
  7. UNKNOWN MEDICATION [Concomitant]
     Indication: ANXIETY
     Route: 048
  8. UNKNOWN MEDICATION [Concomitant]
     Indication: NERVOUSNESS
     Route: 048

REACTIONS (2)
  - Injection site injury [Recovering/Resolving]
  - Injection site bruising [Recovered/Resolved]
